FAERS Safety Report 17131245 (Version 2)
Quarter: 2020Q1

REPORT INFORMATION
  Report Type: Spontaneous
  Country: QA (occurrence: QA)
  Receive Date: 20191209
  Receipt Date: 20200106
  Transmission Date: 20200409
  Serious: Yes (Other)
  Sender: FDA-Public Use
  Company Number: QA-009507513-1912QAT001604

PATIENT
  Age: 53 Year
  Sex: Female

DRUGS (2)
  1. PEMBROLIZUMAB. [Suspect]
     Active Substance: PEMBROLIZUMAB
     Indication: CLEAR CELL ENDOMETRIAL CARCINOMA
     Dosage: SINGLE DOSE
     Dates: start: 20170902, end: 20170902
  2. PEMBROLIZUMAB. [Suspect]
     Active Substance: PEMBROLIZUMAB
     Indication: MICROSATELLITE INSTABILITY CANCER

REACTIONS (2)
  - Immune-mediated encephalitis [Unknown]
  - Immune-mediated pancytopenia [Unknown]

NARRATIVE: CASE EVENT DATE: 201709
